FAERS Safety Report 18344490 (Version 4)
Quarter: 2020Q4

REPORT INFORMATION
  Report Type: Spontaneous
  Country: US (occurrence: US)
  Receive Date: 20201005
  Receipt Date: 20201020
  Transmission Date: 20210114
  Serious: No
  Sender: FDA-Public Use
  Company Number: US-PFIZER INC-2020383121

PATIENT
  Age: 77 Year
  Sex: Female

DRUGS (3)
  1. SODIUM BICARBONATE. [Suspect]
     Active Substance: SODIUM BICARBONATE
     Dosage: UNK
     Route: 058
     Dates: start: 20200925
  2. EPINEPHRINE/LIDOCAINE HYDROCHLORIDE [Suspect]
     Active Substance: EPINEPHRINE\LIDOCAINE HYDROCHLORIDE
     Indication: LOCAL ANAESTHESIA
     Dosage: UNK (.5MLS LIDOCAINE HCL MIXED WITH SODIUM BICARB SUBCUTANEOUS INJECTION FOR A BIOPSY)
     Route: 058
     Dates: start: 20200925
  3. EPINEPHRINE/LIDOCAINE HYDROCHLORIDE [Suspect]
     Active Substance: EPINEPHRINE\LIDOCAINE HYDROCHLORIDE
     Indication: BIOPSY

REACTIONS (4)
  - Injection site pain [Unknown]
  - Injection site urticaria [Recovered/Resolved]
  - Injection site erythema [Recovering/Resolving]
  - Injection site mass [Recovering/Resolving]

NARRATIVE: CASE EVENT DATE: 2020
